FAERS Safety Report 23864994 (Version 2)
Quarter: 2024Q2

REPORT INFORMATION
  Report Type: Spontaneous
  Country: JP (occurrence: JP)
  Receive Date: 20240516
  Receipt Date: 20240521
  Transmission Date: 20240716
  Serious: Yes (Hospitalization)
  Sender: FDA-Public Use
  Company Number: JP-MSD-M2024-17757

PATIENT
  Age: 44 Year
  Sex: Female

DRUGS (5)
  1. KEYTRUDA [Suspect]
     Active Substance: PEMBROLIZUMAB
     Indication: Triple negative breast cancer
     Dosage: 200 MILLIGRAM, Q3W
     Route: 041
     Dates: start: 20240328, end: 2024
  2. CARBOPLATIN [Suspect]
     Active Substance: CARBOPLATIN
     Dosage: UNK
     Route: 065
  3. CARBOPLATIN [Suspect]
     Active Substance: CARBOPLATIN
     Dosage: UNK
     Route: 065
     Dates: start: 2024
  4. PACLITAXEL [Suspect]
     Active Substance: PACLITAXEL
     Dosage: UNK
     Route: 065
  5. PACLITAXEL [Suspect]
     Active Substance: PACLITAXEL
     Dosage: UNK
     Route: 065
     Dates: start: 2024

REACTIONS (3)
  - Oral pain [Recovered/Resolved]
  - Immune-mediated dermatitis [Recovered/Resolved]
  - Hepatic function abnormal [Recovered/Resolved]

NARRATIVE: CASE EVENT DATE: 20240408
